FAERS Safety Report 19958033 (Version 1)
Quarter: 2021Q4

REPORT INFORMATION
  Report Type: Spontaneous
  Country: CN (occurrence: CN)
  Receive Date: 20211015
  Receipt Date: 20211015
  Transmission Date: 20220303
  Serious: Yes (Hospitalization)
  Sender: FDA-Public Use
  Company Number: 2021A733940

PATIENT
  Age: 60 Year
  Sex: Male
  Weight: 74 kg

DRUGS (1)
  1. IMFINZI [Suspect]
     Active Substance: DURVALUMAB
     Indication: Non-small cell lung cancer stage III
     Dosage: 740.0MG UNKNOWN
     Route: 042
     Dates: end: 20210112

REACTIONS (2)
  - Radiation pneumonitis [Recovered/Resolved]
  - Nasopharyngitis [Not Recovered/Not Resolved]
